FAERS Safety Report 6755876-X (Version None)
Quarter: 2010Q2

REPORT INFORMATION
  Report Type: 
  Country: None (occurrence: None)
  Receive Date: 20100603
  Receipt Date: 20100603
  Transmission Date: 20101027
  Serious: Yes (Disabling, Other)
  Sender: FDA-Public Use
  Company Number: None

PATIENT
  Age: 56 Year
  Sex: Female
  Weight: 63.5036 kg

DRUGS (2)
  1. SENSODYNE-F [Suspect]
     Indication: SENSITIVITY OF TEETH
     Dosage: 1 RIBBON OF TOOTHPASTE 2 - 3 TIMES DAILY PO DECADES
     Route: 048
     Dates: start: 19850101, end: 20060301
  2. COLGATE [Suspect]

REACTIONS (8)
  - EXPOSURE TO TOXIC AGENT [None]
  - FACIAL SPASM [None]
  - FOOD POISONING [None]
  - MALAISE [None]
  - MIGRAINE [None]
  - NAUSEA [None]
  - PRODUCT FORMULATION ISSUE [None]
  - PRODUCT LABEL ISSUE [None]
